FAERS Safety Report 21512472 (Version 1)
Quarter: 2022Q4

REPORT INFORMATION
  Report Type: Spontaneous
  Country: CA (occurrence: CA)
  Receive Date: 20221027
  Receipt Date: 20221027
  Transmission Date: 20230112
  Serious: Yes (Death, Other)
  Sender: FDA-Public Use
  Company Number: CA-TEVA-2022-CA-2819620

PATIENT
  Age: 15 Year
  Sex: Female
  Weight: 34 kg

DRUGS (3)
  1. SILDENAFIL CITRATE [Suspect]
     Active Substance: SILDENAFIL CITRATE
     Indication: Pulmonary hypertension
     Route: 065
  2. SILDENAFIL CITRATE [Suspect]
     Active Substance: SILDENAFIL CITRATE
     Indication: Heart disease congenital
     Route: 065
  3. SILDENAFIL CITRATE [Suspect]
     Active Substance: SILDENAFIL CITRATE
     Indication: Fontan procedure
     Dosage: 80 MILLIGRAM DAILY;
     Route: 048

REACTIONS (4)
  - Cardiac failure [Fatal]
  - Condition aggravated [Fatal]
  - Off label use [Fatal]
  - Off label use [Fatal]
